FAERS Safety Report 6344182-3 (Version None)
Quarter: 2009Q3

REPORT INFORMATION
  Report Type: 
  Country: None (occurrence: None)
  Receive Date: 20090908
  Receipt Date: 20090825
  Transmission Date: 20100115
  Serious: Yes (Other)
  Sender: FDA-Public Use
  Company Number: CH-PFIZER INC-2009259291

PATIENT
  Age: 62 Year

DRUGS (3)
  1. SORTIS [Suspect]
     Dosage: UNK
     Dates: start: 20060101, end: 20090101
  2. LESCOL [Suspect]
     Dosage: UNK
     Dates: end: 20090101
  3. EZETROL [Suspect]

REACTIONS (2)
  - RESTLESS LEGS SYNDROME [None]
  - SLEEP APNOEA SYNDROME [None]
